FAERS Safety Report 9797129 (Version 1)
Quarter: 2014Q1

REPORT INFORMATION
  Report Type: Spontaneous
  Country: TR (occurrence: TR)
  Receive Date: 20140106
  Receipt Date: 20140106
  Transmission Date: 20141002
  Serious: Yes (Hospitalization)
  Sender: FDA-Public Use
  Company Number: PHHY2013TR154033

PATIENT
  Age: 27 Year
  Sex: Male

DRUGS (3)
  1. CLOZAPINE [Suspect]
     Indication: SCHIZOPHRENIA
     Dosage: 150 MG, PER DAY
  2. CLOZAPINE [Suspect]
     Dosage: 200 MG, PER DAY
  3. CLOZAPINE [Suspect]
     Dosage: 100 MG, PER DAY

REACTIONS (2)
  - Psychotic disorder [Unknown]
  - Drug level increased [Unknown]
